FAERS Safety Report 24203494 (Version 1)
Quarter: 2024Q3

REPORT INFORMATION
  Report Type: Spontaneous
  Country: US (occurrence: US)
  Receive Date: 20240813
  Receipt Date: 20240813
  Transmission Date: 20241017
  Serious: No
  Sender: TEVA
  Company Number: US-TEVA-VS-3228701

PATIENT

DRUGS (1)
  1. LENALIDOMIDE [Suspect]
     Active Substance: LENALIDOMIDE
     Indication: Product used for unknown indication
     Route: 065

REACTIONS (5)
  - Nervous system disorder [Unknown]
  - Adverse drug reaction [Unknown]
  - Product substitution issue [Unknown]
  - Therapeutic response changed [Unknown]
  - General physical health deterioration [Unknown]
